FAERS Safety Report 8214248-1 (Version None)
Quarter: 2012Q1

REPORT INFORMATION
  Report Type: 
  Country: None (occurrence: None)
  Receive Date: 20120315
  Receipt Date: 20120315
  Transmission Date: 20120608
  Serious: Yes (Hospitalization)
  Sender: FDA-Public Use
  Company Number: None

PATIENT
  Age: 39 Year
  Sex: Male
  Weight: 75 kg

DRUGS (9)
  1. OXYCONTIN [Concomitant]
  2. FOLIC ACID [Concomitant]
  3. HYDRALAZINE HCL [Concomitant]
  4. PLAVIX [Concomitant]
  5. FERRIPROX [Suspect]
     Indication: IRON OVERLOAD
     Dosage: 2GM TID PO
     Route: 048
     Dates: start: 20120309
  6. CARVEDILOL [Concomitant]
  7. DESFERAL [Concomitant]
  8. SOD BICARBONATE, [Concomitant]
  9. ASPIRIN [Concomitant]

REACTIONS (4)
  - DIZZINESS [None]
  - NAUSEA [None]
  - SICKLE CELL ANAEMIA WITH CRISIS [None]
  - VOMITING [None]
